FAERS Safety Report 6111874-0 (Version None)
Quarter: 2009Q1

REPORT INFORMATION
  Report Type: 
  Country: None (occurrence: None)
  Receive Date: 20090311
  Receipt Date: 20090210
  Transmission Date: 20090719
  Serious: No
  Sender: FDA-Public Use
  Company Number: US-JNJFOC-20090203073

PATIENT
  Age: 17 Year
  Sex: Male
  Weight: 144.24 kg

DRUGS (5)
  1. INVEGA [Suspect]
     Indication: BIPOLAR DISORDER
     Route: 048
  2. PROTONIX [Concomitant]
     Indication: GASTRITIS
     Route: 048
  3. LUNESTA [Concomitant]
     Indication: SLEEP DISORDER THERAPY
     Route: 048
  4. BENADRYL [Concomitant]
     Indication: SLEEP DISORDER THERAPY
     Route: 048
  5. PERCOCET [Concomitant]
     Indication: PAIN
     Dosage: 7.5/325 MG

REACTIONS (1)
  - ABDOMINAL PAIN UPPER [None]
